FAERS Safety Report 5136179-6 (Version None)
Quarter: 2006Q4

REPORT INFORMATION
  Report Type: 
  Country: None (occurrence: None)
  Receive Date: 20061027
  Receipt Date: 20060720
  Transmission Date: 20070319
  Serious: Yes (Other)
  Sender: FDA-Public Use
  Company Number: CH-ROCHE-456302

PATIENT
  Age: 10 Month
  Sex: Female
  Weight: 6.7 kg

DRUGS (1)
  1. ROCEPHIN [Suspect]
     Indication: URINARY TRACT INFECTION
     Route: 042
     Dates: start: 20060616, end: 20060616

REACTIONS (5)
  - ANAPHYLACTIC SHOCK [None]
  - CHILLS [None]
  - TACHYCARDIA [None]
  - TYPE I HYPERSENSITIVITY [None]
  - VOMITING [None]
